FAERS Safety Report 6145059-9 (Version None)
Quarter: 2009Q2

REPORT INFORMATION
  Report Type: 
  Country: None (occurrence: None)
  Receive Date: 20090406
  Receipt Date: 20090401
  Transmission Date: 20091009
  Serious: Yes (Other)
  Sender: FDA-Public Use
  Company Number: US-AVENTIS-200912067US

PATIENT
  Sex: Male

DRUGS (6)
  1. AMARYL [Suspect]
     Dosage: DOSE: 2 4MG TABS BEFORE BREAKFAST AND 1 TABLET (ALSO REPORTED AS (1) MG TAB) AT 5PM
     Dates: start: 20070101
  2. LANTUS [Suspect]
     Route: 058
  3. TOPROL-XL [Concomitant]
     Dosage: DOSE: UNK
  4. METFORMIN HCL [Concomitant]
     Dosage: DOSE: UNK
  5. LIPITOR [Concomitant]
     Dosage: DOSE: UNK
  6. DDAVP [Concomitant]
     Dosage: DOSE: UNK

REACTIONS (2)
  - BLOOD GLUCOSE INCREASED [None]
  - CEREBROVASCULAR ACCIDENT [None]
